FAERS Safety Report 8437143-1 (Version None)
Quarter: 2012Q2

REPORT INFORMATION
  Report Type: 
  Country: None (occurrence: None)
  Receive Date: 20120614
  Receipt Date: 20120411
  Transmission Date: 20120825
  Serious: No
  Sender: FDA-Public Use
  Company Number: US-AMGEN-USASP2012022880

PATIENT
  Age: 65 Year
  Sex: Female

DRUGS (4)
  1. IMITREX [Concomitant]
  2. TESTOSTERONE/ESTROGEN [Concomitant]
  3. PRILOSEC [Concomitant]
  4. PROLIA [Suspect]
     Indication: OSTEOPOROSIS POSTMENOPAUSAL
     Dosage: 60 MG, Q6MO
     Dates: start: 20110801

REACTIONS (1)
  - RASH [None]
